FAERS Safety Report 5129799-6 (Version None)
Quarter: 2006Q4

REPORT INFORMATION
  Report Type: 
  Country: None (occurrence: None)
  Receive Date: 20061018
  Receipt Date: 20061005
  Transmission Date: 20070319
  Serious: Yes (Hospitalization)
  Sender: FDA-Public Use
  Company Number: GBWYE145006OCT06

PATIENT
  Age: 45 Year
  Sex: Female

DRUGS (6)
  1. ENBREL [Suspect]
     Indication: RHEUMATOID ARTHRITIS
     Route: 058
     Dates: start: 20060101, end: 20060101
  2. PREDNISOLONE [Concomitant]
  3. LANSOPRAZOLE [Concomitant]
     Dosage: UNKNOWN
  4. METHOTREXATE [Concomitant]
  5. CIPRAMIL [Concomitant]
     Dosage: UNKNOWN
  6. KETOPROFEN [Concomitant]
     Dosage: UNKNOWN

REACTIONS (2)
  - PYODERMA GANGRENOSUM [None]
  - VASCULITIS [None]
